FAERS Safety Report 10744187 (Version 1)
Quarter: 2015Q1

REPORT INFORMATION
  Report Type: Spontaneous
  Country: US (occurrence: US)
  Receive Date: 20150128
  Receipt Date: 20150128
  Transmission Date: 20150721
  Serious: No
  Sender: FDA-Public Use
  Company Number: US-ASTRAZENECA-2015SE05205

PATIENT
  Sex: Female
  Weight: 72.6 kg

DRUGS (2)
  1. ANASTRAZOLE [Suspect]
     Active Substance: ANASTROZOLE
     Indication: BREAST CANCER
     Dosage: GENERIC, DAILY
     Route: 048
  2. ANASTRAZOLE [Suspect]
     Active Substance: ANASTROZOLE
     Indication: BREAST CANCER
     Dosage: DAILY
     Route: 048

REACTIONS (1)
  - Muscle spasms [Recovered/Resolved]
